FAERS Safety Report 7864773-8 (Version None)
Quarter: 2011Q4

REPORT INFORMATION
  Report Type: 
  Country: None (occurrence: None)
  Receive Date: 20111026
  Receipt Date: 20111011
  Transmission Date: 20120403
  Serious: Yes (Other)
  Sender: FDA-Public Use
  Company Number: TPA2011A04222

PATIENT
  Age: 43 Year
  Sex: Male

DRUGS (3)
  1. COLCHICINE [Suspect]
     Dosage: ORAL
     Route: 048
  2. ADENURIC (FEBUXOSTAT) [Suspect]
     Indication: HYPERURICAEMIA
     Dosage: 80 MG (80 MG, 1 - 2) PER ORAL
     Route: 048
     Dates: start: 20110617
  3. INDOMETHACIN [Suspect]
     Dosage: PER ORAL
     Route: 048

REACTIONS (3)
  - CONDITION AGGRAVATED [None]
  - BLINDNESS UNILATERAL [None]
  - GLAUCOMA [None]
